FAERS Safety Report 6463870-1 (Version None)
Quarter: 2009Q4

REPORT INFORMATION
  Report Type: 
  Country: None (occurrence: None)
  Receive Date: 20091130
  Receipt Date: 20091130
  Transmission Date: 20100525
  Serious: Yes (Other)
  Sender: FDA-Public Use
  Company Number: None

PATIENT
  Age: 60 Year
  Sex: Female
  Weight: 81.6475 kg

DRUGS (2)
  1. CIPRO [Suspect]
     Indication: CYSTITIS
     Dosage: 500 MG (1000 MG DAILY) TWICE DAILY ORAL
     Route: 048
     Dates: start: 20090130
  2. CIPRO [Suspect]
     Indication: CYSTITIS
     Dosage: 500 MG (1000 MG DAILY) TWICE DAILY ORAL
     Route: 048
     Dates: start: 20090609

REACTIONS (3)
  - ERYTHEMA [None]
  - PAIN IN EXTREMITY [None]
  - TENDONITIS [None]
